FAERS Safety Report 20923744 (Version 4)
Quarter: 2022Q4

REPORT INFORMATION
  Report Type: Report from Study
  Country: NL (occurrence: None)
  Receive Date: 20220607
  Receipt Date: 20221003
  Transmission Date: 20230113
  Serious: Yes (Death, Hospitalization)
  Sender: FDA-Public Use
  Company Number: NL-ROCHE-3112594

PATIENT
  Age: 76 Year
  Sex: Male
  Weight: 110 kg

DRUGS (12)
  1. RITUXIMAB [Suspect]
     Active Substance: RITUXIMAB
     Indication: B-cell lymphoma
     Dosage: ON 04/AUG/2021, 17/JAN/2022, 14/MAR/2022 LAST DOSE OF RITUXIMAB PRIOR TO EVENT
     Route: 065
     Dates: start: 20211122, end: 20220314
  2. EPCORITAMAB [Suspect]
     Active Substance: EPCORITAMAB
     Indication: Follicular lymphoma
     Dosage: PRIMING DOSE OF (0.16 MG) ON 22-NOV-2021, THE INTERMEDIATE DOSE OF (0.8 MG) ON 29-NOV-2021 AND THE F
     Route: 058
     Dates: start: 20211122, end: 20211122
  3. LENALIDOMIDE [Suspect]
     Active Substance: LENALIDOMIDE
     Indication: Follicular lymphoma
     Route: 048
     Dates: start: 20211122
  4. ASPIRIN [Concomitant]
     Active Substance: ASPIRIN
     Dates: start: 20180117, end: 20220430
  5. SULFAMETHOXAZOLE\TRIMETHOPRIM [Concomitant]
     Active Substance: SULFAMETHOXAZOLE\TRIMETHOPRIM
     Dates: start: 20211122
  6. NADROPARIN CALCIUM [Concomitant]
     Active Substance: NADROPARIN CALCIUM
     Dates: start: 20220425, end: 20220430
  7. GLICLAZIDE [Concomitant]
     Active Substance: GLICLAZIDE
     Dates: start: 20220110, end: 20220426
  8. METFORMIN [Concomitant]
     Active Substance: METFORMIN HYDROCHLORIDE
     Dates: start: 20210917
  9. METOPROLOL [Concomitant]
     Active Substance: METOPROLOL
     Dates: start: 20180107
  10. MOMETASONE [Concomitant]
     Active Substance: MOMETASONE
  11. SILDENAFIL [Concomitant]
     Active Substance: SILDENAFIL
  12. SIMVASTATIN [Concomitant]
     Active Substance: SIMVASTATIN

REACTIONS (2)
  - COVID-19 [Fatal]
  - Sinusitis [Unknown]

NARRATIVE: CASE EVENT DATE: 20220228
